FAERS Safety Report 14684359 (Version 2)
Quarter: 2018Q2

REPORT INFORMATION
  Report Type: Spontaneous
  Country: US (occurrence: US)
  Receive Date: 20180327
  Receipt Date: 20180416
  Transmission Date: 20180711
  Serious: No
  Sender: FDA-Public Use
  Company Number: US-TEVA-2018-US-872658

PATIENT
  Age: 89 Year
  Sex: Male

DRUGS (2)
  1. AMOXAPINE. [Suspect]
     Active Substance: AMOXAPINE
     Indication: DEPRESSION
     Dates: start: 1987
  2. AMOXAPINE. [Suspect]
     Active Substance: AMOXAPINE
     Indication: ANXIETY
     Dates: start: 1987

REACTIONS (4)
  - Migraine [Unknown]
  - Wrong technique in product usage process [Unknown]
  - Anxiety [Unknown]
  - Depression [Unknown]
